FAERS Safety Report 8230537-9 (Version None)
Quarter: 2012Q1

REPORT INFORMATION
  Report Type: 
  Country: None (occurrence: None)
  Receive Date: 20120323
  Receipt Date: 20120313
  Transmission Date: 20120608
  Serious: No
  Sender: FDA-Public Use
  Company Number: JP-UCBSA-052668

PATIENT
  Age: 9 Year
  Weight: 36 kg

DRUGS (3)
  1. CLARITIN [Concomitant]
     Indication: URTICARIA
     Dosage: I TABLET IN THE MORNING
     Dates: end: 20120117
  2. POLARAMINE [Concomitant]
     Indication: URTICARIA
     Dosage: 1 TABLET (2MG)
  3. XYZAL [Suspect]
     Indication: URTICARIA
     Route: 048
     Dates: start: 20120120, end: 20120123

REACTIONS (4)
  - RESTLESSNESS [None]
  - DYSKINESIA [None]
  - INSOMNIA [None]
  - TREMOR [None]
